FAERS Safety Report 9563035 (Version 2)
Quarter: 2013Q3

REPORT INFORMATION
  Report Type: Spontaneous
  Country: US (occurrence: US)
  Receive Date: 20130927
  Receipt Date: 20130927
  Transmission Date: 20140515
  Serious: No
  Sender: FDA-Public Use
  Company Number: US-BRISTOL-MYERS SQUIBB COMPANY-16834053

PATIENT
  Age: 64 Year
  Sex: Female

DRUGS (2)
  1. ONGLYZA TABS 5 MG [Suspect]
     Indication: HYPERGLYCAEMIA
     Dosage: INTRPD ON:08JUL2012,RESUMED ON:22JUL2012
     Route: 048
  2. PROZAC [Suspect]
     Dosage: DOSE INCREASED TO 20MG ON 16MAY12

REACTIONS (1)
  - Hallucination [Not Recovered/Not Resolved]
